FAERS Safety Report 21519229 (Version 5)
Quarter: 2023Q2

REPORT INFORMATION
  Report Type: Report from Study
  Country: US (occurrence: US)
  Receive Date: 20221028
  Receipt Date: 20230630
  Transmission Date: 20230722
  Serious: Yes (Other)
  Sender: FDA-Public Use
  Company Number: US-ABBVIE-4158781

PATIENT
  Age: 57 Year
  Sex: Female

DRUGS (4)
  1. SKYRIZI [Suspect]
     Active Substance: RISANKIZUMAB-RZAA
     Indication: Psoriasis
     Route: 058
  2. SKYRIZI [Suspect]
     Active Substance: RISANKIZUMAB-RZAA
     Dosage: WEEK 0, STRENGTH: 150 MG
     Route: 058
     Dates: start: 20220908, end: 20220908
  3. SKYRIZI [Suspect]
     Active Substance: RISANKIZUMAB-RZAA
     Dosage: WEEK 4, FORM STRENGTH: 150 MILLIGRAM
     Route: 058
     Dates: start: 20221107, end: 20221107
  4. SKYRIZI [Suspect]
     Active Substance: RISANKIZUMAB-RZAA
     Dosage: FORM STRENGTH: 150 MILLIGRAM, START DATE: UNKNOWN DATE
     Route: 058

REACTIONS (20)
  - Joint arthroplasty [Unknown]
  - Myalgia [Recovering/Resolving]
  - Musculoskeletal disorder [Unknown]
  - Osteotomy [Unknown]
  - Gait inability [Unknown]
  - Psoriasis [Recovering/Resolving]
  - Chills [Recovering/Resolving]
  - Device issue [Unknown]
  - Rash papular [Unknown]
  - Headache [Unknown]
  - Skin maceration [Unknown]
  - Cough [Recovering/Resolving]
  - Mobility decreased [Unknown]
  - Incision site vesicles [Unknown]
  - Post procedural complication [Unknown]
  - Feeling cold [Recovering/Resolving]
  - Localised infection [Unknown]
  - Skin mass [Unknown]
  - Illness [Unknown]
  - Toe operation [Unknown]

NARRATIVE: CASE EVENT DATE: 20220901
